FAERS Safety Report 4811220-6 (Version None)
Quarter: 2005Q4

REPORT INFORMATION
  Report Type: 
  Country: None (occurrence: None)
  Receive Date: 20051025
  Receipt Date: 20051011
  Transmission Date: 20060501
  Serious: Yes (Hospitalization, Other)
  Sender: FDA-Public Use
  Company Number: GBR-2005-0001924

PATIENT
  Age: 45 Year
  Sex: Male

DRUGS (3)
  1. MORPHINE [Suspect]
     Indication: PAIN IN EXTREMITY
  2. CLOZARIL [Suspect]
     Indication: SCHIZOPHRENIA
     Dosage: 800 MG, DAILY, ORAL
     Route: 048
     Dates: start: 19990421, end: 20050501
  3. OMEPRAZOLE [Concomitant]

REACTIONS (4)
  - MUSCLE SPASMS [None]
  - OVERDOSE [None]
  - PAIN IN EXTREMITY [None]
  - RESTLESS LEGS SYNDROME [None]
